FAERS Safety Report 7050146-7 (Version None)
Quarter: 2010Q4

REPORT INFORMATION
  Report Type: 
  Country: None (occurrence: None)
  Receive Date: 20101018
  Receipt Date: 20101013
  Transmission Date: 20110411
  Serious: Yes (Other)
  Sender: FDA-Public Use
  Company Number: JP-PFIZER INC-2010083722

PATIENT
  Age: 76 Year
  Sex: Male
  Weight: 47.4 kg

DRUGS (9)
  1. LYRICA [Suspect]
     Dosage: 75 MG, 2X/DAY
     Route: 048
     Dates: start: 20100630, end: 20100708
  2. ATARAX [Suspect]
     Dosage: 25 MG, 3X/DAY
     Route: 048
     Dates: start: 20100623, end: 20100705
  3. ZOLOFT [Suspect]
     Dosage: 50 MG, 1X/DAY
     Route: 048
     Dates: start: 20100701, end: 20100708
  4. DEPAS [Concomitant]
     Dosage: 0.5 MG, 3X/DAY
     Route: 048
     Dates: start: 20100623, end: 20100705
  5. CODEINE PHOSPHATE [Concomitant]
     Dosage: 2 G, 3X/DAY
     Route: 048
     Dates: start: 20100622, end: 20100705
  6. LOXONIN [Concomitant]
     Dosage: 60 MG, AS NEEDED
     Route: 048
  7. MICARDIS [Concomitant]
     Dosage: 40 MG, 1X/DAY
     Route: 048
  8. PARIET [Concomitant]
     Dosage: 10 MG, 1X/DAY
     Route: 048
  9. LENDORMIN [Concomitant]
     Dosage: 0.25 MG, 1X/DAY
     Route: 048

REACTIONS (4)
  - CONFUSIONAL STATE [None]
  - DISORIENTATION [None]
  - PAIN [None]
  - VISUAL IMPAIRMENT [None]
